FAERS Safety Report 6272887-1 (Version None)
Quarter: 2009Q3

REPORT INFORMATION
  Report Type: 
  Country: None (occurrence: None)
  Receive Date: 20090717
  Receipt Date: 20090715
  Transmission Date: 20100115
  Serious: Yes (Other)
  Sender: FDA-Public Use
  Company Number: US-ABBOTT-09P-163-0585072-00

PATIENT
  Sex: Male
  Weight: 77.18 kg

DRUGS (1)
  1. TRICOR [Suspect]
     Indication: BLOOD TRIGLYCERIDES INCREASED
     Dates: start: 20090401, end: 20090714

REACTIONS (2)
  - MYODESOPSIA [None]
  - RETINAL TEAR [None]
